FAERS Safety Report 5320821-0 (Version None)
Quarter: 2007Q2

REPORT INFORMATION
  Report Type: 
  Country: None (occurrence: None)
  Receive Date: 20070509
  Receipt Date: 20070507
  Transmission Date: 20071010
  Serious: Yes (Hospitalization)
  Sender: FDA-Public Use
  Company Number: US-MERCK-0705USA01497

PATIENT
  Age: 62 Year
  Sex: Male

DRUGS (1)
  1. PRIMAXIN [Suspect]
     Indication: INFECTION PROPHYLAXIS
     Route: 042
     Dates: start: 20070503, end: 20070506

REACTIONS (3)
  - NAUSEA [None]
  - TIC [None]
  - TREMOR [None]
